FAERS Safety Report 14730682 (Version 1)
Quarter: 2018Q2

REPORT INFORMATION
  Report Type: Spontaneous
  Country: US (occurrence: US)
  Receive Date: 20180406
  Receipt Date: 20180406
  Transmission Date: 20180711
  Serious: No
  Sender: FDA-Public Use
  Company Number: US-ELI_LILLY_AND_COMPANY-US201803012158

PATIENT
  Sex: Male

DRUGS (4)
  1. TURMERIC                           /01079601/ [Concomitant]
     Active Substance: HERBALS\TURMERIC
     Dosage: UNK, UNKNOWN
     Route: 065
  2. CINNAMOMUM CAMPHORA [Concomitant]
     Dosage: UNK, UNKNOWN
     Route: 065
  3. CIALIS [Suspect]
     Active Substance: TADALAFIL
     Indication: ERECTILE DYSFUNCTION
     Dosage: 5 MG, OTHER
     Route: 048
     Dates: start: 201709
  4. LOSARTAN. [Concomitant]
     Active Substance: LOSARTAN
     Indication: HYPERTENSION
     Dosage: UNK, UNKNOWN
     Route: 065

REACTIONS (3)
  - Inappropriate schedule of drug administration [Unknown]
  - Erythema [Not Recovered/Not Resolved]
  - Pruritus [Not Recovered/Not Resolved]
